FAERS Safety Report 6586556-1 (Version None)
Quarter: 2010Q1

REPORT INFORMATION
  Report Type: 
  Country: None (occurrence: None)
  Receive Date: 20100217
  Receipt Date: 20090323
  Transmission Date: 20100710
  Serious: Yes (Other)
  Sender: FDA-Public Use
  Company Number: US-ALLERGAN-0903850US

PATIENT
  Age: 78 Year
  Sex: Female

DRUGS (5)
  1. BOTOX [Suspect]
     Indication: NECK PAIN
     Dosage: UNK, SINGLE
     Route: 030
     Dates: start: 20090309, end: 20090309
  2. BOTOX [Suspect]
     Dosage: UNK, SINGLE
     Route: 030
     Dates: start: 20081201, end: 20081201
  3. BENICAR [Concomitant]
     Indication: DRUG USE FOR UNKNOWN INDICATION
  4. XANAX [Concomitant]
  5. AMBIEN [Concomitant]

REACTIONS (1)
  - MUSCULAR WEAKNESS [None]
